FAERS Safety Report 14767814 (Version 1)
Quarter: 2018Q2

REPORT INFORMATION
  Report Type: Spontaneous
  Country: IT (occurrence: IT)
  Receive Date: 20180417
  Receipt Date: 20180417
  Transmission Date: 20180711
  Serious: Yes (Hospitalization)
  Sender: FDA-Public Use
  Company Number: IT-ALLERGAN-1820704US

PATIENT
  Age: 77 Year
  Sex: Female

DRUGS (2)
  1. TRITTICO [Suspect]
     Active Substance: TRAZODONE HYDROCHLORIDE
     Indication: DEPRESSION
     Route: 048
     Dates: start: 20170818, end: 20170910
  2. ESCITALOPRAM OXALATE - BP [Suspect]
     Active Substance: ESCITALOPRAM OXALATE
     Indication: DEPRESSION
     Dosage: UNK
     Route: 048
     Dates: start: 20170818, end: 20170910

REACTIONS (3)
  - Confusional state [Unknown]
  - Agitation [Unknown]
  - Depression [Unknown]

NARRATIVE: CASE EVENT DATE: 20170910
